FAERS Safety Report 4773027-8 (Version None)
Quarter: 2005Q3

REPORT INFORMATION
  Report Type: 
  Country: None (occurrence: None)
  Receive Date: 20050916
  Receipt Date: 20050902
  Transmission Date: 20060218
  Serious: Yes (Death, Life-Threatening)
  Sender: FDA-Public Use
  Company Number: 2005JP001595

PATIENT
  Age: 61 Year
  Sex: Male
  Weight: 72.2 kg

DRUGS (10)
  1. FUNGUARD(MICAFUNGIN) INJECTION [Suspect]
     Indication: BRONCHOPULMONARY ASPERGILLOSIS
     Dosage: SEE IMAGE
     Route: 041
     Dates: start: 20050423, end: 20050501
  2. FUNGUARD(MICAFUNGIN) INJECTION [Suspect]
     Indication: BRONCHOPULMONARY ASPERGILLOSIS
     Dosage: SEE IMAGE
     Route: 041
     Dates: start: 20050520, end: 20050714
  3. FUNGUARD(MICAFUNGIN) INJECTION [Suspect]
     Indication: BRONCHOPULMONARY ASPERGILLOSIS
     Dosage: SEE IMAGE
     Route: 041
     Dates: start: 20050715, end: 20050810
  4. FUNGIZONE INJECTION [Concomitant]
  5. MAXIPIME [Concomitant]
  6. EXACIN (ISEPAMICIN SULFATE) INJECTION [Concomitant]
  7. CARBENIN (BETAMIPRON, PANIPENEM) INJECTION [Concomitant]
  8. OMEGACIN INJECTION [Concomitant]
  9. VANCOMYCIN [Concomitant]
  10. PASIL (PAZUFLOXACIN MESILATE) [Concomitant]

REACTIONS (8)
  - ACUTE MYELOID LEUKAEMIA [None]
  - BLOOD ALKALINE PHOSPHATASE INCREASED [None]
  - CONDITION AGGRAVATED [None]
  - GAMMA-GLUTAMYLTRANSFERASE INCREASED [None]
  - HEPATIC FUNCTION ABNORMAL [None]
  - LIVER DISORDER [None]
  - OCULAR ICTERUS [None]
  - SEPSIS [None]
